FAERS Safety Report 12116311 (Version 1)
Quarter: 2016Q1

REPORT INFORMATION
  Report Type: Spontaneous
  Country: US (occurrence: US)
  Receive Date: 20160225
  Receipt Date: 20160225
  Transmission Date: 20160526
  Serious: No
  Sender: FDA-Public Use
  Company Number: US-MYLANLABS-2015M1025860

PATIENT
  Sex: Female

DRUGS (1)
  1. STERILE VANCOMYCIN HYDROCHLORIDE USP [Suspect]
     Active Substance: VANCOMYCIN HYDROCHLORIDE
     Dosage: 1.5 G, Q12H
     Route: 042
     Dates: start: 20150726, end: 201507

REACTIONS (1)
  - Antibiotic level above therapeutic [Not Recovered/Not Resolved]

NARRATIVE: CASE EVENT DATE: 201507
